FAERS Safety Report 4551332-8 (Version None)
Quarter: 2005Q1

REPORT INFORMATION
  Report Type: 
  Country: None (occurrence: None)
  Receive Date: 20050113
  Receipt Date: 20041015
  Transmission Date: 20050727
  Serious: Yes (Hospitalization, Other)
  Sender: FDA-Public Use
  Company Number: DE-MERCK-0410DEU00502

PATIENT
  Age: 70 Year
  Sex: Female
  Weight: 88 kg

DRUGS (5)
  1. VIOXX [Suspect]
     Indication: ARTHRALGIA
     Route: 048
     Dates: start: 20030305, end: 20041011
  2. VIOXX [Suspect]
     Route: 048
     Dates: start: 20030305, end: 20041011
  3. ASPIRIN [Concomitant]
     Route: 065
     Dates: start: 19990101
  4. BISOPROLOL FUMARATE AND HYDROCHLOROTHIAZIDE [Concomitant]
     Route: 065
     Dates: start: 19990101
  5. ATORVASTATIN CALCIUM [Concomitant]
     Route: 065
     Dates: start: 20000101

REACTIONS (6)
  - CEREBROVASCULAR ACCIDENT [None]
  - CORONARY ARTERY DISEASE [None]
  - DIABETES MELLITUS NON-INSULIN-DEPENDENT [None]
  - GASTRITIS [None]
  - HYPERTENSIVE CARDIOMYOPATHY [None]
  - MYOCARDIAL INFARCTION [None]
